FAERS Safety Report 6633745-3 (Version None)
Quarter: 2010Q1

REPORT INFORMATION
  Report Type: 
  Country: None (occurrence: None)
  Receive Date: 20100315
  Receipt Date: 20100308
  Transmission Date: 20100710
  Serious: Yes (Hospitalization)
  Sender: FDA-Public Use
  Company Number: US-BIOGENIDEC-2010BI006905

PATIENT
  Age: 39 Year
  Sex: Female
  Weight: 124 kg

DRUGS (5)
  1. AVONEX [Suspect]
     Indication: MULTIPLE SCLEROSIS
     Route: 030
     Dates: start: 20100226
  2. BYETTA [Concomitant]
     Indication: DIABETES MELLITUS
  3. ACTOS [Concomitant]
     Indication: DIABETES MELLITUS
  4. GLUCOPHAGE [Concomitant]
     Indication: DIABETES MELLITUS
  5. NOVALOG [Concomitant]
     Indication: DIABETES MELLITUS

REACTIONS (5)
  - BLOOD GLUCOSE INCREASED [None]
  - CHEST DISCOMFORT [None]
  - CHEST PAIN [None]
  - INFLUENZA LIKE ILLNESS [None]
  - MUSCLE SPASMS [None]
